FAERS Safety Report 18247236 (Version 1)
Quarter: 2020Q3

REPORT INFORMATION
  Report Type: Spontaneous
  Country: US (occurrence: US)
  Receive Date: 20200909
  Receipt Date: 20200909
  Transmission Date: 20201103
  Serious: No
  Sender: FDA-Public Use
  Company Number: US-SUNOVION-2020SUN002553

PATIENT
  Age: 69 Year
  Sex: Female

DRUGS (1)
  1. XOPENEX [Suspect]
     Active Substance: LEVALBUTEROL HYDROCHLORIDE
     Indication: OBSTRUCTIVE AIRWAYS DISORDER
     Dosage: 15 ?G/2 ML, 2 PUFFS Q4H
     Route: 055
     Dates: start: 2001

REACTIONS (1)
  - Muscle spasms [Not Recovered/Not Resolved]
